FAERS Safety Report 12909427 (Version 1)
Quarter: 2016Q4

REPORT INFORMATION
  Report Type: Spontaneous
  Country: US (occurrence: US)
  Receive Date: 20161104
  Receipt Date: 20161104
  Transmission Date: 20170207
  Serious: No
  Sender: FDA-Public Use
  Company Number: US-BIOGEN-2016BI00310822

PATIENT
  Sex: Male

DRUGS (1)
  1. TYSABRI [Suspect]
     Active Substance: NATALIZUMAB
     Indication: MULTIPLE SCLEROSIS
     Route: 065
     Dates: start: 20090701

REACTIONS (8)
  - Mood swings [Unknown]
  - Tremor [Unknown]
  - Drug effect decreased [Unknown]
  - Anger [Unknown]
  - Multiple sclerosis [Unknown]
  - Malaise [Unknown]
  - Asthenia [Unknown]
  - Drug dose omission [Unknown]
